FAERS Safety Report 5220884-7 (Version None)
Quarter: 2007Q1

REPORT INFORMATION
  Report Type: 
  Country: None (occurrence: None)
  Receive Date: 20070126
  Receipt Date: 20070122
  Transmission Date: 20070707
  Serious: Yes (Hospitalization)
  Sender: FDA-Public Use
  Company Number: FR-GLAXOSMITHKLINE-B0449608A

PATIENT
  Age: 82 Year
  Sex: Female
  Weight: 70 kg

DRUGS (5)
  1. ARIXTRA [Suspect]
     Indication: DEEP VEIN THROMBOSIS
     Dosage: 2.5MG PER DAY
     Route: 058
     Dates: start: 20061016, end: 20061118
  2. LEVOTHYROXINE SODIUM [Concomitant]
  3. TENORMIN [Concomitant]
  4. PRAVASTATIN [Concomitant]
  5. SYMBICORT [Concomitant]

REACTIONS (3)
  - DRUG INEFFECTIVE [None]
  - DYSPNOEA [None]
  - PULMONARY EMBOLISM [None]
